FAERS Safety Report 5115638-6 (Version None)
Quarter: 2006Q3

REPORT INFORMATION
  Report Type: 
  Country: None (occurrence: None)
  Receive Date: 20060927
  Receipt Date: 20060710
  Transmission Date: 20061208
  Serious: Yes (Hospitalization, Other)
  Sender: FDA-Public Use
  Company Number: US-BAYER-200614520BWH

PATIENT
  Age: 76 Year
  Sex: Female

DRUGS (12)
  1. NEXAVAR [Suspect]
     Indication: RENAL CELL CARCINOMA STAGE UNSPECIFIED
     Dosage: TOTAL DAILY DOSE: 800 MG  UNIT DOSE: 200 MG
     Route: 048
     Dates: start: 20051101
  2. NEXAVAR [Suspect]
     Dosage: TOTAL DAILY DOSE: 800 MG  UNIT DOSE: 200 MG
     Route: 048
     Dates: start: 20060501
  3. CALCIUM GLUCONATE [Concomitant]
  4. MAGNESIUM [Concomitant]
  5. STOOL SOFTENER (NOS) [Concomitant]
  6. AGGRENOX [Concomitant]
  7. DIGOXIN [Concomitant]
  8. OXYCODONE HCL [Concomitant]
  9. TOPROL-XL [Concomitant]
  10. HYDROCHLOROTHIAZDE TAB [Concomitant]
  11. PROMETHAZINE [Concomitant]
  12. K+ [Concomitant]

REACTIONS (5)
  - ANAEMIA [None]
  - BLOOD COUNT ABNORMAL [None]
  - CEREBROVASCULAR ACCIDENT [None]
  - FATIGUE [None]
  - STOMATITIS [None]
